FAERS Safety Report 21312663 (Version 1)
Quarter: 2022Q3

REPORT INFORMATION
  Report Type: Spontaneous
  Country: DE (occurrence: DE)
  Receive Date: 20220909
  Receipt Date: 20220909
  Transmission Date: 20221026
  Serious: Yes (Hospitalization)
  Sender: FDA-Public Use
  Company Number: DE-ELI_LILLY_AND_COMPANY-DE202207002545

PATIENT
  Age: 84 Year
  Sex: Female

DRUGS (1)
  1. TALTZ [Suspect]
     Active Substance: IXEKIZUMAB
     Indication: Product used for unknown indication
     Dosage: 80 MG, OTHER EVERY 4 WEEKS
     Route: 058
     Dates: start: 202005, end: 20220326

REACTIONS (2)
  - Retinal detachment [Unknown]
  - COVID-19 [Unknown]
